FAERS Safety Report 13483159 (Version 4)
Quarter: 2017Q4

REPORT INFORMATION
  Report Type: Spontaneous
  Country: US (occurrence: US)
  Receive Date: 20170426
  Receipt Date: 20171215
  Transmission Date: 20180320
  Serious: Yes (Hospitalization, Other)
  Sender: FDA-Public Use
  Company Number: US-JNJFOC-20170118490

PATIENT
  Age: 74 Year
  Sex: Male

DRUGS (6)
  1. FISH OIL [Concomitant]
     Active Substance: FISH OIL
  2. BYSTOLIC [Concomitant]
     Active Substance: NEBIVOLOL HYDROCHLORIDE
  3. IMBRUVICA [Suspect]
     Active Substance: IBRUTINIB
     Indication: CHRONIC LYMPHOCYTIC LEUKAEMIA
     Route: 048
     Dates: start: 20150901
  4. IMBRUVICA [Suspect]
     Active Substance: IBRUTINIB
     Indication: CHRONIC LYMPHOCYTIC LEUKAEMIA
     Route: 048
     Dates: start: 20160913
  5. CRESTOR [Concomitant]
     Active Substance: ROSUVASTATIN CALCIUM
  6. FLUTICASONE. [Concomitant]
     Active Substance: FLUTICASONE

REACTIONS (10)
  - Infection susceptibility increased [Not Recovered/Not Resolved]
  - Pancreatic cyst [Unknown]
  - Infected bite [Unknown]
  - Nasopharyngitis [Unknown]
  - Localised infection [Unknown]
  - Contusion [Unknown]
  - Gastroenteritis viral [Unknown]
  - Wound infection [Not Recovered/Not Resolved]
  - Peripheral swelling [Unknown]
  - Scratch [Unknown]

NARRATIVE: CASE EVENT DATE: 201612
